FAERS Safety Report 12443259 (Version 2)
Quarter: 2016Q2

REPORT INFORMATION
  Report Type: Report from Study
  Country: US (occurrence: US)
  Receive Date: 20160607
  Receipt Date: 20160623
  Transmission Date: 20160815
  Serious: Yes (Death, Hospitalization, Other)
  Sender: FDA-Public Use
  Company Number: US-GILEAD-2016-0207849

PATIENT
  Age: 82 Year
  Sex: Male

DRUGS (1)
  1. AMBRISENTAN [Suspect]
     Active Substance: AMBRISENTAN
     Indication: PULMONARY HYPERTENSION
     Dosage: 5 MG, QD
     Route: 065
     Dates: start: 20160322

REACTIONS (8)
  - Chronic obstructive pulmonary disease [Fatal]
  - Renal failure [Fatal]
  - Pulmonary arterial hypertension [Fatal]
  - Surgery [Unknown]
  - Fall [Unknown]
  - Laryngitis [Unknown]
  - Wrist fracture [Unknown]
  - Pulmonary embolism [Fatal]

NARRATIVE: CASE EVENT DATE: 20160505
